FAERS Safety Report 7675201-X (Version None)
Quarter: 2011Q3

REPORT INFORMATION
  Report Type: 
  Country: None (occurrence: None)
  Receive Date: 20110810
  Receipt Date: 20110810
  Transmission Date: 20111222
  Serious: Yes (Hospitalization)
  Sender: FDA-Public Use
  Company Number: None

PATIENT
  Age: 39 Year
  Sex: Male
  Weight: 63 kg

DRUGS (8)
  1. MEGACE [Concomitant]
     Dosage: 400MG
     Route: 048
     Dates: start: 20110201, end: 20110807
  2. PERCOCET [Concomitant]
     Route: 048
  3. AMLODIPINE [Concomitant]
     Route: 048
  4. NEXAVAR [Suspect]
     Indication: METASTASES TO LUNG
     Dosage: 200MG
     Route: 048
     Dates: start: 20110201, end: 20110807
  5. NEXAVAR [Suspect]
     Indication: NASAL CAVITY CANCER
     Dosage: 200MG
     Route: 048
     Dates: start: 20110201, end: 20110807
  6. ASPIRIN [Concomitant]
     Route: 048
  7. MS CONTIN [Concomitant]
     Route: 048
  8. PROMETHAZINE [Concomitant]
     Route: 048

REACTIONS (1)
  - BUNDLE BRANCH BLOCK [None]
